FAERS Safety Report 25580367 (Version 1)
Quarter: 2025Q3

REPORT INFORMATION
  Report Type: Spontaneous
  Country: US (occurrence: US)
  Receive Date: 20250718
  Receipt Date: 20250718
  Transmission Date: 20251020
  Serious: No
  Sender: NOVO NORDISK
  Company Number: US-NOVOPROD-1394237

PATIENT
  Sex: Female

DRUGS (1)
  1. WEGOVY [Suspect]
     Active Substance: SEMAGLUTIDE
     Indication: Weight decreased
     Route: 058
     Dates: start: 202408, end: 202502

REACTIONS (6)
  - Brain fog [Unknown]
  - Muscle spasms [Unknown]
  - Illness [Unknown]
  - Headache [Unknown]
  - Fatigue [Unknown]
  - Suspected counterfeit product [Unknown]
